FAERS Safety Report 6425745-3 (Version None)
Quarter: 2009Q4

REPORT INFORMATION
  Report Type: 
  Country: None (occurrence: None)
  Receive Date: 20091029
  Receipt Date: 20091016
  Transmission Date: 20100525
  Serious: Yes (Death)
  Sender: FDA-Public Use
  Company Number: 2009AC000063

PATIENT
  Age: 61 Year
  Sex: Male
  Weight: 127.0072 kg

DRUGS (11)
  1. DIGOXIN [Suspect]
     Dosage: 0.25 MG; QD; PO
     Route: 048
     Dates: start: 19970101, end: 20081117
  2. CARVEDILOL [Concomitant]
  3. WARFARIN SODIUM [Concomitant]
  4. HYDROCHLOROT [Concomitant]
  5. ENALAPRIL [Concomitant]
  6. ALLOPURINOL [Concomitant]
  7. HYDROCODONE BITARTRATE AND ACETAMINOPHEN [Concomitant]
  8. CEFADROXIL [Concomitant]
  9. TRAMADOL HCL [Concomitant]
  10. LEVOPHED [Concomitant]
  11. DOPAMINE HCL [Concomitant]

REACTIONS (15)
  - AGONAL RHYTHM [None]
  - ATRIAL FIBRILLATION [None]
  - BLOOD CREATINE INCREASED [None]
  - BLOOD POTASSIUM INCREASED [None]
  - BLOOD PRESSURE IMMEASURABLE [None]
  - BLOOD UREA INCREASED [None]
  - CARDIAC ARREST [None]
  - DIZZINESS [None]
  - ECONOMIC PROBLEM [None]
  - HYPERTENSION [None]
  - LACERATION [None]
  - MULTIPLE INJURIES [None]
  - PRESYNCOPE [None]
  - PROTHROMBIN TIME PROLONGED [None]
  - SURGERY [None]
